FAERS Safety Report 8785703 (Version 2)
Quarter: 2013Q1

REPORT INFORMATION
  Report Type: Spontaneous
  Country: AU (occurrence: AU)
  Receive Date: 20120914
  Receipt Date: 20130128
  Transmission Date: 20140127
  Serious: No
  Sender: FDA-Public Use
  Company Number: AU-JNJFOC-20120901280

PATIENT
  Sex: Female

DRUGS (1)
  1. DUROGESIC [Suspect]
     Indication: PRODUCT USED FOR UNKNOWN INDICATION
     Route: 062

REACTIONS (5)
  - Chills [Unknown]
  - Drug dose omission [Unknown]
  - Product quality issue [Unknown]
  - Product adhesion issue [Unknown]
  - Product quality issue [Unknown]
